FAERS Safety Report 6148547-4 (Version None)
Quarter: 2009Q2

REPORT INFORMATION
  Report Type: 
  Country: None (occurrence: None)
  Receive Date: 20090406
  Receipt Date: 20090406
  Transmission Date: 20091009
  Serious: No
  Sender: FDA-Public Use
  Company Number: None

PATIENT
  Age: 3 Month
  Sex: Male
  Weight: 8.1647 kg

DRUGS (1)
  1. LEVOTHYROXINE SODIUM [Suspect]
     Indication: HYPOTHYROIDISM
     Dosage: 30 TABLETS OF 50 MCG EACH ONCE DAILY PO
     Route: 048
     Dates: start: 20090321, end: 20090403

REACTIONS (6)
  - ABDOMINAL DISCOMFORT [None]
  - DRUG EXPOSURE VIA BREAST MILK [None]
  - FLUSHING [None]
  - RASH [None]
  - SLEEP DISORDER [None]
  - VOMITING [None]
